FAERS Safety Report 9610908 (Version 2)
Quarter: 2013Q4

REPORT INFORMATION
  Report Type: Report from Study
  Country: BR (occurrence: BR)
  Receive Date: 20131009
  Receipt Date: 20131009
  Transmission Date: 20140711
  Serious: Yes (Hospitalization)
  Sender: FDA-Public Use
  Company Number: BR-ELI_LILLY_AND_COMPANY-BR201308009504

PATIENT
  Age: 26 Year
  Sex: Female

DRUGS (4)
  1. LISPRO [Suspect]
     Indication: TYPE 1 DIABETES MELLITUS
     Dosage: UNK, QD
     Route: 065
  2. METFORMINA /00082701/ [Suspect]
     Dosage: UNK, UNKNOWN
     Route: 065
  3. LANTUS [Concomitant]
     Indication: TYPE 1 DIABETES MELLITUS
     Dosage: UNK, UNKNOWN
     Route: 065
  4. PURAN T4 [Concomitant]
     Indication: THYROID DISORDER
     Dosage: 50 MG, QD
     Route: 065

REACTIONS (5)
  - Hypoglycaemia [Recovered/Resolved]
  - Complication of pregnancy [Unknown]
  - Diabetic complication [Unknown]
  - Blood glucose abnormal [Unknown]
  - Exposure during pregnancy [Unknown]
